FAERS Safety Report 5888323-0 (Version None)
Quarter: 2008Q3

REPORT INFORMATION
  Report Type: 
  Country: None (occurrence: None)
  Receive Date: 20080918
  Receipt Date: 20080915
  Transmission Date: 20090109
  Serious: Yes (Death)
  Sender: FDA-Public Use
  Company Number: US-ASTRAZENECA-2008UW15540

PATIENT
  Age: 17869 Day
  Sex: Female

DRUGS (3)
  1. SEROQUEL [Suspect]
     Indication: BIPOLAR DISORDER
     Dosage: 100MG PER DAY, 30MG BID, UP TO 700MG PER DAY
     Route: 048
     Dates: start: 20031111, end: 20060816
  2. FLUPHENAZINE [Concomitant]
     Dates: start: 20050403, end: 20050802
  3. LITHIUM CARBONATE [Concomitant]
     Dates: start: 20060420, end: 20060517

REACTIONS (3)
  - ARTHRALGIA [None]
  - DIABETIC CARDIOMYOPATHY [None]
  - HALLUCINATION [None]
